FAERS Safety Report 4902895-1 (Version None)
Quarter: 2006Q1

REPORT INFORMATION
  Report Type: 
  Country: None (occurrence: None)
  Receive Date: 20060201
  Receipt Date: 20051130
  Transmission Date: 20060701
  Serious: No
  Sender: FDA-Public Use
  Company Number: 2005PV005125

PATIENT
  Sex: Male
  Weight: 113.3993 kg

DRUGS (5)
  1. BYETTA [Suspect]
     Indication: DIABETES MELLITUS NON-INSULIN-DEPENDENT
     Dosage: 5 MCG BID SC; 10 MCG BID SC
     Route: 058
     Dates: start: 20050926, end: 20051024
  2. BYETTA [Suspect]
     Indication: DIABETES MELLITUS NON-INSULIN-DEPENDENT
     Dosage: 5 MCG BID SC; 10 MCG BID SC
     Route: 058
     Dates: start: 20051025, end: 20051128
  3. GLYBURIDE [Concomitant]
  4. ACTOS ^LILLY^ [Concomitant]
  5. NOVOLOG [Concomitant]

REACTIONS (2)
  - BLOOD GLUCOSE INCREASED [None]
  - WEIGHT DECREASED [None]
